FAERS Safety Report 10996268 (Version 4)
Quarter: 2015Q3

REPORT INFORMATION
  Report Type: Report from Study
  Country: CA (occurrence: CA)
  Receive Date: 20150408
  Receipt Date: 20150812
  Transmission Date: 20151125
  Serious: Yes (Other)
  Sender: FDA-Public Use
  Company Number: CA-ROCHE-1446931

PATIENT
  Age: 65 Year
  Sex: Female
  Weight: 118 kg

DRUGS (7)
  1. ACTEMRA [Suspect]
     Active Substance: TOCILIZUMAB
     Route: 042
     Dates: start: 20141008
  2. ACTEMRA [Suspect]
     Active Substance: TOCILIZUMAB
     Dosage: UNKNOWN *1ST RPAP DOSE NO PIR
     Route: 042
     Dates: start: 20140703
  3. FUROSEMIDE. [Concomitant]
     Active Substance: FUROSEMIDE
  4. ACTEMRA [Suspect]
     Active Substance: TOCILIZUMAB
     Route: 042
     Dates: start: 20150128
  5. ACTEMRA [Suspect]
     Active Substance: TOCILIZUMAB
     Indication: RHEUMATOID ARTHRITIS
     Dosage: UNKNOWN DOSE, FREQUENCY, UNKNOWN START DATE
     Route: 042
     Dates: end: 20150720
  6. ACTEMRA [Suspect]
     Active Substance: TOCILIZUMAB
     Route: 042
     Dates: start: 20140806
  7. ESOMEPRAZOLE [Concomitant]
     Active Substance: ESOMEPRAZOLE

REACTIONS (6)
  - Pneumonia [Unknown]
  - Weight increased [Unknown]
  - Neutrophil count decreased [Unknown]
  - Weight decreased [Not Recovered/Not Resolved]
  - White blood cell count decreased [Unknown]
  - Cytopenia [Unknown]

NARRATIVE: CASE EVENT DATE: 201411
